FAERS Safety Report 13819020 (Version 1)
Quarter: 2017Q3

REPORT INFORMATION
  Report Type: Report from Study
  Country: US (occurrence: US)
  Receive Date: 20170731
  Receipt Date: 20170731
  Transmission Date: 20171127
  Serious: No
  Sender: FDA-Public Use
  Company Number: US-EXELIXIS-CABO-17008694

PATIENT
  Sex: Female

DRUGS (9)
  1. ASPIRIN. [Concomitant]
     Active Substance: ASPIRIN
  2. IRON [Concomitant]
     Active Substance: IRON
  3. DETROL [Concomitant]
     Active Substance: TOLTERODINE TARTRATE
  4. NORVASC [Concomitant]
     Active Substance: AMLODIPINE BESYLATE
  5. CABOMETYX [Suspect]
     Active Substance: CABOZANTINIB S-MALATE
     Indication: RENAL CANCER
     Dosage: 60 MG, QD
     Route: 048
     Dates: start: 20170125
  6. SERTRALINE [Concomitant]
     Active Substance: SERTRALINE HYDROCHLORIDE
  7. MULTIVITAMIN [Concomitant]
     Active Substance: VITAMINS
  8. SYNTHROID [Concomitant]
     Active Substance: LEVOTHYROXINE SODIUM
  9. FLUORIDE [Concomitant]
     Active Substance: SODIUM FLUORIDE

REACTIONS (5)
  - Malaise [Unknown]
  - Pain [Unknown]
  - Haemoglobin decreased [Unknown]
  - Incoherent [Unknown]
  - Adverse drug reaction [Unknown]
